FAERS Safety Report 8255180-7 (Version None)
Quarter: 2012Q1

REPORT INFORMATION
  Report Type: 
  Country: None (occurrence: None)
  Receive Date: 20120322
  Receipt Date: 20120210
  Transmission Date: 20120608
  Serious: Yes (Hospitalization)
  Sender: FDA-Public Use
  Company Number: UTC-015489

PATIENT
  Age: 20 Year
  Sex: Male
  Weight: 69.5 kg

DRUGS (4)
  1. ADCIRCA [Concomitant]
  2. LETAIRIS [Concomitant]
  3. TYVASO [Suspect]
     Indication: PULMONARY HYPERTENSION
     Dosage: 54 MCG, INHALATION
     Route: 055
     Dates: start: 20111020
  4. COUMADIN [Concomitant]

REACTIONS (1)
  - TOOTH DISORDER [None]
